FAERS Safety Report 8371885-1 (Version None)
Quarter: 2012Q2

REPORT INFORMATION
  Report Type: 
  Country: None (occurrence: None)
  Receive Date: 20120518
  Receipt Date: 20120516
  Transmission Date: 20120825
  Serious: Yes (Hospitalization)
  Sender: FDA-Public Use
  Company Number: US-GILEAD-2012-0050405

PATIENT
  Sex: Female

DRUGS (3)
  1. LETAIRIS [Suspect]
     Indication: PULMONARY HYPERTENSION
     Dosage: 10 MG, UNK
     Route: 048
     Dates: start: 20090626
  2. LETAIRIS [Suspect]
     Indication: DRUG ABUSE
  3. VENTAVIS [Concomitant]

REACTIONS (3)
  - BACK PAIN [None]
  - ARTHRALGIA [None]
  - BACK DISORDER [None]
